FAERS Safety Report 9457222 (Version 1)
Quarter: 2013Q3

REPORT INFORMATION
  Report Type: Spontaneous
  Country: IT (occurrence: IT)
  Receive Date: 20130814
  Receipt Date: 20130814
  Transmission Date: 20140515
  Serious: Yes (Hospitalization, Other)
  Sender: FDA-Public Use
  Company Number: IT-BRISTOL-MYERS SQUIBB COMPANY-19181544

PATIENT
  Age: 74 Year
  Sex: Male

DRUGS (3)
  1. METFORMIN HCL [Suspect]
     Indication: DIABETES MELLITUS
     Route: 048
     Dates: start: 20130101, end: 20130706
  2. CARDIOASPIRIN [Concomitant]
     Indication: ANGIOPATHY
     Dosage: TABLET
     Dates: start: 20130101, end: 20130706
  3. GLIBENCLAMIDE [Concomitant]
     Indication: DIABETES MELLITUS
     Dates: start: 20130101, end: 20130706

REACTIONS (1)
  - Metabolic acidosis [Unknown]
